FAERS Safety Report 16191070 (Version 12)
Quarter: 2020Q3

REPORT INFORMATION
  Report Type: Report from Study
  Country: PT (occurrence: PT)
  Receive Date: 20190412
  Receipt Date: 20200416
  Transmission Date: 20201105
  Serious: Yes (Hospitalization, Other)
  Sender: FDA-Public Use
  Company Number: PT-ACTELION-A-CH2019-188750

PATIENT
  Age: 6 Year
  Sex: Female
  Weight: 16 kg

DRUGS (3)
  1. OMEPRAZOLE. [Concomitant]
     Active Substance: OMEPRAZOLE
  2. MACITENTAN [Suspect]
     Active Substance: MACITENTAN
     Indication: PULMONARY ARTERIAL HYPERTENSION
     Dosage: 5 MG, QD
     Route: 048
     Dates: start: 20190104, end: 20190404
  3. FLUTICASONE. [Concomitant]
     Active Substance: FLUTICASONE

REACTIONS (45)
  - Tracheal stenosis [Recovered/Resolved with Sequelae]
  - Bronchoscopy [Unknown]
  - Respiratory distress [Recovered/Resolved]
  - C-reactive protein increased [Recovered/Resolved]
  - Blood albumin decreased [Recovered/Resolved]
  - Staphylococcal infection [Recovered/Resolved]
  - Respiratory tract oedema [Recovered/Resolved]
  - Upper respiratory tract infection [Recovered/Resolved]
  - Tachypnoea [Recovered/Resolved]
  - Oxygen saturation decreased [Recovered/Resolved]
  - Weight increased [Recovered/Resolved]
  - N-terminal prohormone brain natriuretic peptide increased [Recovered/Resolved]
  - Blood urea increased [Recovered/Resolved]
  - Respiratory failure [Recovered/Resolved with Sequelae]
  - Secretion discharge [Recovered/Resolved with Sequelae]
  - Pyrexia [Recovered/Resolved]
  - Pleural effusion [Recovered/Resolved]
  - Increased bronchial secretion [Recovered/Resolved]
  - Alanine aminotransferase increased [Recovered/Resolved]
  - Bradycardia [Recovered/Resolved with Sequelae]
  - Purulent discharge [Recovered/Resolved]
  - Hypoxia [Recovered/Resolved with Sequelae]
  - Somnolence [Unknown]
  - Blood creatinine increased [Recovered/Resolved]
  - Apnoea [Recovered/Resolved with Sequelae]
  - Stridor [Recovered/Resolved with Sequelae]
  - Haemophilus infection [Recovered/Resolved]
  - Vomiting [Recovered/Resolved]
  - Respiratory tract procedural complication [Recovered/Resolved]
  - Renal replacement therapy [Unknown]
  - Cardiogenic shock [Recovered/Resolved]
  - Ascites [Recovered/Resolved]
  - Wheezing [Recovered/Resolved]
  - Hepatomegaly [Recovered/Resolved]
  - Aspartate aminotransferase increased [Recovered/Resolved]
  - Blood bilirubin abnormal [Recovered/Resolved]
  - Blood lactate dehydrogenase increased [Recovered/Resolved]
  - Right ventricular failure [Recovered/Resolved]
  - Generalised oedema [Recovered/Resolved]
  - Haemoglobin decreased [Recovered/Resolved]
  - Oxygen saturation abnormal [Recovered/Resolved with Sequelae]
  - Aspiration [Recovered/Resolved]
  - Heart valve incompetence [Unknown]
  - Pulmonary hypertension [Unknown]
  - Hypotension [Unknown]

NARRATIVE: CASE EVENT DATE: 2019
